FAERS Safety Report 17350396 (Version 7)
Quarter: 2021Q4

REPORT INFORMATION
  Report Type: Report from Study
  Country: CA (occurrence: CA)
  Receive Date: 20200130
  Receipt Date: 20211222
  Transmission Date: 20220303
  Serious: Yes (Other)
  Sender: FDA-Public Use
  Company Number: None

PATIENT
  Age: 84 Year
  Sex: Female

DRUGS (13)
  1. ERELZI [Suspect]
     Active Substance: ETANERCEPT-SZZS
     Indication: Ankylosing spondylitis
     Dosage: 50 MG, Q2W
     Route: 058
     Dates: start: 20190325
  2. ERELZI [Suspect]
     Active Substance: ETANERCEPT-SZZS
     Dosage: 50 MG, QW
     Route: 058
     Dates: start: 20190415
  3. ERELZI [Suspect]
     Active Substance: ETANERCEPT-SZZS
     Dosage: 50 MG, QW
     Route: 058
     Dates: start: 20190701
  4. ERELZI [Suspect]
     Active Substance: ETANERCEPT-SZZS
     Dosage: UNK, Q2W
     Route: 058
     Dates: start: 20191230
  5. ERELZI [Suspect]
     Active Substance: ETANERCEPT-SZZS
     Dosage: 50 MG, UNKNOWN
     Route: 058
     Dates: start: 20200109
  6. ERELZI [Suspect]
     Active Substance: ETANERCEPT-SZZS
     Dosage: 50 MG, QW
     Route: 058
     Dates: end: 20200217
  7. CYCLOSPORINE [Concomitant]
     Active Substance: CYCLOSPORINE
     Indication: Product used for unknown indication
     Dosage: UNK
     Route: 065
  8. CORTISONE [Concomitant]
     Active Substance: CORTISONE
     Indication: Product used for unknown indication
     Dosage: UNK
     Route: 058
  9. VOLTAREN [Concomitant]
     Active Substance: DICLOFENAC SODIUM
     Indication: Product used for unknown indication
     Dosage: UNK
     Route: 061
  10. TYLENOL [Concomitant]
     Active Substance: ACETAMINOPHEN
     Indication: Product used for unknown indication
     Dosage: UNK
     Route: 065
  11. LINAGLIPTIN [Concomitant]
     Active Substance: LINAGLIPTIN
     Indication: Product used for unknown indication
     Dosage: UNK
     Route: 065
  12. GLUMETZA [Concomitant]
     Active Substance: METFORMIN HYDROCHLORIDE
     Indication: Product used for unknown indication
     Dosage: UNK
     Route: 065
  13. HYDROCHLOROTHIAZIDE\OLMESARTAN MEDOXOMIL [Concomitant]
     Active Substance: HYDROCHLOROTHIAZIDE\OLMESARTAN MEDOXOMIL
     Indication: Product used for unknown indication
     Dosage: UNK
     Route: 065

REACTIONS (25)
  - Bloody discharge [Unknown]
  - Fatigue [Not Recovered/Not Resolved]
  - Somnolence [Unknown]
  - Weight increased [Unknown]
  - Pain in extremity [Unknown]
  - Gait disturbance [Unknown]
  - Skin disorder [Unknown]
  - Headache [Not Recovered/Not Resolved]
  - Secretion discharge [Unknown]
  - Oropharyngeal pain [Unknown]
  - Epistaxis [Unknown]
  - Back pain [Unknown]
  - Pain [Unknown]
  - Peripheral swelling [Unknown]
  - Feeling abnormal [Unknown]
  - Grip strength decreased [Unknown]
  - Swelling [Unknown]
  - Arthropathy [Unknown]
  - Influenza [Unknown]
  - Pyrexia [Recovering/Resolving]
  - Sinusitis [Unknown]
  - Injection site pruritus [Unknown]
  - Injection site erythema [Unknown]
  - Injection site pain [Unknown]
  - Injection site haemorrhage [Unknown]

NARRATIVE: CASE EVENT DATE: 20190401
